FAERS Safety Report 5264438-5 (Version None)
Quarter: 2007Q1

REPORT INFORMATION
  Report Type: 
  Country: None (occurrence: None)
  Receive Date: 20070309
  Receipt Date: 20070307
  Transmission Date: 20070707
  Serious: Yes (Hospitalization)
  Sender: FDA-Public Use
  Company Number: 217224

PATIENT
  Age: 51 Year
  Sex: Female

DRUGS (12)
  1. XOLAIR [Suspect]
     Indication: ASTHMA
     Dosage: 300 MG, Q2W
     Dates: start: 20050310
  2. PULMICORT [Concomitant]
  3. ALBUTEROL (ALBUTEROL/ALBUTEROL SULFATE) [Concomitant]
  4. ATROVENT [Concomitant]
  5. CROMOLYN (CROMOLYN SODIUM) [Concomitant]
  6. RHINOCORT [Concomitant]
  7. CLARITIN [Concomitant]
  8. SINGULAIR [Concomitant]
  9. PREDNISONE TAB [Concomitant]
  10. SPORANOX [Concomitant]
  11. PULMICORT [Concomitant]
  12. PULMICORT (BU [Concomitant]

REACTIONS (4)
  - ASTHENIA [None]
  - ASTHMA [None]
  - DIAPHRAGMATIC DISORDER [None]
  - MYOPATHY [None]
